FAERS Safety Report 4392596-3 (Version None)
Quarter: 2004Q3

REPORT INFORMATION
  Report Type: 
  Country: None (occurrence: None)
  Receive Date: 20040702
  Receipt Date: 20040621
  Transmission Date: 20050211
  Serious: Yes (Life-Threatening, Hospitalization)
  Sender: FDA-Public Use
  Company Number: 2004-BP-04674YA

PATIENT
  Age: 63 Year
  Sex: Male

DRUGS (4)
  1. HARNAL (TAMSULOSIN) (NR) [Suspect]
     Indication: BENIGN PROSTATIC HYPERPLASIA
     Dosage: 0.2 MG    PO
     Route: 048
     Dates: start: 20040213, end: 20040221
  2. CHLORMADINONE ACETATE TAB [Suspect]
     Indication: BENIGN PROSTATIC HYPERPLASIA
     Dosage: 50 MG  PO
     Route: 048
     Dates: start: 20040227, end: 20040521
  3. FLAVOXATE HCL [Suspect]
     Indication: POLLAKIURIA
     Dosage: 600 MG  PO
     Route: 048
     Dates: start: 20040213, end: 20040521
  4. FLIVAS (NAFTOPIDIL) [Concomitant]

REACTIONS (9)
  - ALANINE AMINOTRANSFERASE INCREASED [None]
  - ASPARTATE AMINOTRANSFERASE INCREASED [None]
  - ASTHENIA [None]
  - BLOOD ALKALINE PHOSPHATASE INCREASED [None]
  - BLOOD BILIRUBIN INCREASED [None]
  - CHROMATURIA [None]
  - GAMMA-GLUTAMYLTRANSFERASE INCREASED [None]
  - HEPATIC FUNCTION ABNORMAL [None]
  - MALAISE [None]
